FAERS Safety Report 8980374 (Version 10)
Quarter: 2024Q1

REPORT INFORMATION
  Report Type: Report from Study
  Country: CA (occurrence: CA)
  Receive Date: 20121221
  Receipt Date: 20240308
  Transmission Date: 20240410
  Serious: Yes (Hospitalization, Disabling, Other)
  Sender: FDA-Public Use
  Company Number: PHHY2012CA118019

PATIENT
  Age: 70 Year
  Sex: Male
  Weight: 68.5 kg

DRUGS (6)
  1. TASIGNA [Suspect]
     Active Substance: NILOTINIB
     Indication: Chronic myeloid leukaemia
     Dosage: 400 MG, BID
     Route: 048
     Dates: start: 20090501
  2. TASIGNA [Suspect]
     Active Substance: NILOTINIB
     Dosage: 300 MG, BID
     Route: 048
     Dates: start: 200906, end: 202401
  3. TASIGNA [Suspect]
     Active Substance: NILOTINIB
     Dosage: 150 MG
     Route: 048
  4. AMLODIPINE [Concomitant]
     Active Substance: AMLODIPINE BESYLATE
     Indication: Product used for unknown indication
     Dosage: UNK
     Route: 065
  5. LOVASTATIN [Concomitant]
     Active Substance: LOVASTATIN
     Indication: Product used for unknown indication
     Dosage: UNK
     Route: 065
  6. PLAVIX [Concomitant]
     Active Substance: CLOPIDOGREL BISULFATE
     Indication: Blood pressure measurement
     Dosage: UNK
     Route: 065

REACTIONS (11)
  - Cerebrovascular accident [Recovered/Resolved]
  - Peripheral vascular disorder [Recovered/Resolved with Sequelae]
  - Gangrene [Recovered/Resolved with Sequelae]
  - Neoplasm malignant [Unknown]
  - Blood pressure increased [Recovered/Resolved]
  - Peripheral arterial occlusive disease [Unknown]
  - Gait disturbance [Recovered/Resolved]
  - Nervousness [Unknown]
  - Arterial occlusive disease [Unknown]
  - Mood swings [Unknown]
  - Fatigue [Unknown]

NARRATIVE: CASE EVENT DATE: 20120401
